FAERS Safety Report 18127339 (Version 1)
Quarter: 2020Q3

REPORT INFORMATION
  Report Type: Spontaneous
  Country: US (occurrence: US)
  Receive Date: 20200810
  Receipt Date: 20200810
  Transmission Date: 20201103
  Serious: Yes (Hospitalization)
  Sender: FDA-Public Use
  Company Number: US-GW PHARMA-202008USGW02705

PATIENT

DRUGS (1)
  1. EPIDIOLEX [Suspect]
     Active Substance: CANNABIDIOL
     Indication: LENNOX-GASTAUT SYNDROME
     Dosage: 160 MILLIGRAM, BID
     Route: 048
     Dates: start: 20190911

REACTIONS (3)
  - Constipation [Recovered/Resolved]
  - Lethargy [Recovered/Resolved]
  - Product dose omission issue [Recovered/Resolved]

NARRATIVE: CASE EVENT DATE: 20200801
